FAERS Safety Report 17778544 (Version 1)
Quarter: 2020Q2

REPORT INFORMATION
  Report Type: Spontaneous
  Country: TR (occurrence: TR)
  Receive Date: 20200513
  Receipt Date: 20200513
  Transmission Date: 20200714
  Serious: Yes (Hospitalization, Other)
  Sender: FDA-Public Use
  Company Number: TR-GLAXOSMITHKLINE-TR2020TRK052609

PATIENT

DRUGS (3)
  1. BUDECORT [Suspect]
     Active Substance: BUDESONIDE
     Indication: ASTHMA
     Dosage: UNK
  2. VENTOLIN [Suspect]
     Active Substance: ALBUTEROL SULFATE
     Indication: ASTHMA
     Dosage: UNK
  3. KLAMOX [Suspect]
     Active Substance: AMOXICILLIN\CLAVULANIC ACID
     Indication: PNEUMONIA
     Dosage: UNK

REACTIONS (7)
  - Cough [Unknown]
  - Pneumonia [Unknown]
  - Product prescribing issue [Unknown]
  - Tachycardia [Unknown]
  - Documented hypersensitivity to administered product [Unknown]
  - Palpitations [Unknown]
  - Asthma [Unknown]
